FAERS Safety Report 9997369 (Version 1)
Quarter: 2014Q1

REPORT INFORMATION
  Report Type: Spontaneous
  Country: US (occurrence: None)
  Receive Date: 20140304
  Receipt Date: 20140304
  Transmission Date: 20141002
  Serious: Yes (Hospitalization, Other)
  Sender: FDA-Public Use
  Company Number: RB-58664-2013

PATIENT
  Sex: Male

DRUGS (3)
  1. SUBOXONE 8 MG [Suspect]
     Indication: DRUG DEPENDENCE
     Route: 064
     Dates: start: 20130104, end: 20130117
  2. SUBUTEX [Suspect]
     Indication: DRUG DEPENDENCE
     Route: 064
     Dates: start: 20130118, end: 2013
  3. PRILOSEC [Suspect]
     Indication: PEPTIC ULCER
     Route: 064
     Dates: start: 2013, end: 20130905

REACTIONS (3)
  - Foetal exposure during pregnancy [None]
  - Drug withdrawal syndrome neonatal [None]
  - Exposure during breast feeding [None]
